FAERS Safety Report 9509872 (Version 1)
Quarter: 2013Q3

REPORT INFORMATION
  Report Type: Spontaneous
  Country: US (occurrence: US)
  Receive Date: 20130909
  Receipt Date: 20130909
  Transmission Date: 20140515
  Serious: Yes (Other)
  Sender: FDA-Public Use
  Company Number: CHPA2013US013780

PATIENT
  Age: 18 Year
  Sex: Female

DRUGS (2)
  1. GAS-X [Suspect]
     Indication: FLATULENCE
     Dosage: 1-2 STRIPS, PRN
     Route: 048
  2. THERAFLU VAPOR PATCH [Suspect]
     Indication: HYPERSENSITIVITY
     Dosage: 1 DF, QD

REACTIONS (3)
  - Sinusitis [Recovered/Resolved]
  - Incorrect drug administration duration [Unknown]
  - Prescribed overdose [Unknown]
